FAERS Safety Report 22299133 (Version 1)
Quarter: 2023Q2

REPORT INFORMATION
  Report Type: Spontaneous
  Country: US (occurrence: None)
  Receive Date: 20230508
  Receipt Date: 20230508
  Transmission Date: 20230721
  Serious: Yes (Disabling, Other)
  Sender: FDA-Public Use
  Company Number: None

PATIENT
  Age: 44 Year
  Sex: Female
  Weight: 96.75 kg

DRUGS (15)
  1. REMICADE [Suspect]
     Active Substance: INFLIXIMAB
     Indication: Crohn^s disease
     Dates: start: 20150201, end: 20220601
  2. REMICADE [Suspect]
     Active Substance: INFLIXIMAB
     Indication: Inflammatory bowel disease
  3. REMICADE [Suspect]
     Active Substance: INFLIXIMAB
     Indication: Rheumatoid arthritis
  4. REMICADE [Suspect]
     Active Substance: INFLIXIMAB
     Indication: Colitis
  5. Cimzia elavil [Concomitant]
  6. LYRICA [Concomitant]
     Active Substance: PREGABALIN
  7. REGLAN [Concomitant]
     Active Substance: METOCLOPRAMIDE HYDROCHLORIDE
  8. PROTONIX [Concomitant]
     Active Substance: PANTOPRAZOLE SODIUM
  9. KEPPRA [Concomitant]
     Active Substance: LEVETIRACETAM
  10. METOPROLOL [Concomitant]
     Active Substance: METOPROLOL
  11. ZYRTEC [Concomitant]
     Active Substance: CETIRIZINE HYDROCHLORIDE
  12. TYLENOL [Concomitant]
     Active Substance: ACETAMINOPHEN
  13. AIMOVIG [Concomitant]
     Active Substance: ERENUMAB-AOOE
  14. NURTEC ODT [Concomitant]
     Active Substance: RIMEGEPANT SULFATE
  15. ZANAFLEX [Concomitant]
     Active Substance: TIZANIDINE HYDROCHLORIDE

REACTIONS (11)
  - Oesophageal spasm [None]
  - Cricopharyngeal achalasia [None]
  - Impaired gastric emptying [None]
  - Dysphagia [None]
  - Dyskinesia oesophageal [None]
  - Vagus nerve disorder [None]
  - Vocal cord bowing [None]
  - Neuropathy peripheral [None]
  - Dysphagia [None]
  - Peripheral nerve injury [None]
  - Therapy cessation [None]

NARRATIVE: CASE EVENT DATE: 20201101
